FAERS Safety Report 9603469 (Version 1)
Quarter: 2013Q4

REPORT INFORMATION
  Report Type: Spontaneous
  Country: FR (occurrence: FR)
  Receive Date: 20131007
  Receipt Date: 20131007
  Transmission Date: 20140711
  Serious: Yes (Hospitalization, Other)
  Sender: FDA-Public Use
  Company Number: FR-BRISTOL-MYERS SQUIBB COMPANY-19445337

PATIENT
  Age: 67 Year
  Sex: Male

DRUGS (6)
  1. HYDREA [Suspect]
     Indication: CHRONIC MYELOID LEUKAEMIA
     Route: 048
     Dates: start: 20130607, end: 20130808
  2. ROFERON-A [Suspect]
     Indication: CHRONIC MYELOID LEUKAEMIA
     Dates: start: 20130607
  3. OLMESARTAN MEDOXOMIL [Concomitant]
  4. AMLODIPINE [Concomitant]
  5. ESOMEPRAZOLE [Concomitant]
  6. DOLIPRANE [Concomitant]

REACTIONS (2)
  - Penile ulceration [Recovered/Resolved]
  - Klebsiella test positive [Unknown]
